FAERS Safety Report 16982828 (Version 1)
Quarter: 2019Q4

REPORT INFORMATION
  Report Type: Spontaneous
  Country: US (occurrence: US)
  Receive Date: 20190916
  Receipt Date: 20190916
  Transmission Date: 20200122
  Serious: Yes (Hospitalization, Other)
  Sender: FDA-Public Use
  Company Number: None

PATIENT
  Age: 66 Year
  Sex: Female
  Weight: 58.97 kg

DRUGS (1)
  1. EXTRA STRENGTH STOPAIN COLD PAIN RELIEVING ROLL ON [Suspect]
     Active Substance: MENTHOL
     Dosage: ?          OTHER ROUTE:ON THE SKIN?
     Dates: start: 20190913

REACTIONS (3)
  - Cough [None]
  - Irregular breathing [None]
  - Pneumonia [None]

NARRATIVE: CASE EVENT DATE: 20190913
